FAERS Safety Report 8301784-2 (Version None)
Quarter: 2012Q2

REPORT INFORMATION
  Report Type: 
  Country: None (occurrence: None)
  Receive Date: 20120420
  Receipt Date: 20120418
  Transmission Date: 20120825
  Serious: Yes (Death, Other)
  Sender: FDA-Public Use
  Company Number: CO-JNJFOC-20120408264

PATIENT
  Age: 80 Year
  Sex: Male

DRUGS (1)
  1. RISPERDAL [Suspect]
     Indication: SENILE DEMENTIA
     Route: 048

REACTIONS (2)
  - INTESTINAL OBSTRUCTION [None]
  - ILEUS PARALYTIC [None]
